FAERS Safety Report 23761226 (Version 1)
Quarter: 2024Q2

REPORT INFORMATION
  Report Type: Spontaneous
  Country: SA (occurrence: SA)
  Receive Date: 20240419
  Receipt Date: 20240419
  Transmission Date: 20240716
  Serious: Yes (Other)
  Sender: FDA-Public Use
  Company Number: SA-STRIDES ARCOLAB LIMITED-2024SP004532

PATIENT
  Age: 10 Month
  Sex: Female

DRUGS (3)
  1. PROPRANOLOL [Suspect]
     Active Substance: PROPRANOLOL HYDROCHLORIDE
     Indication: Infantile haemangioma
     Dosage: 3.15 MILLILITER, BID (INITIALLY GAVE PROPRANOLOL 3.15ML TWICE DAILY FOR 2?MONTHS OF 40 MG/5 ML) (STR
     Route: 048
  2. PROPRANOLOL [Suspect]
     Active Substance: PROPRANOLOL HYDROCHLORIDE
     Dosage: 6.5 MILLILITER, BID (INCREASED TO 6.5ML TWICE DAILY FOR 2?WEEKS OF 40?MG/5ML INSTEAD OF 0.4ML AND 0.
     Route: 048
  3. TIMOLOL [Concomitant]
     Active Substance: TIMOLOL
     Indication: Infantile haemangioma
     Dosage: 1 DROP, TID (TIMOLOL OPHTHALMIC DROPS AS TOPICAL ON THE LESION: 1 DROP 3 TIMES DAILY)
     Route: 061

REACTIONS (4)
  - Somnolence [Unknown]
  - Accidental overdose [Unknown]
  - Incorrect dose administered [Unknown]
  - Off label use [Unknown]
